FAERS Safety Report 18726046 (Version 2)
Quarter: 2021Q1

REPORT INFORMATION
  Report Type: Spontaneous
  Country: US (occurrence: US)
  Receive Date: 20210111
  Receipt Date: 20210203
  Transmission Date: 20210419
  Serious: No
  Sender: FDA-Public Use
  Company Number: US-GILEAD-2021-0511821

PATIENT
  Age: 42 Year
  Sex: Female
  Weight: 133.33 kg

DRUGS (7)
  1. EPCLUSA [Suspect]
     Active Substance: SOFOSBUVIR\VELPATASVIR
     Indication: PRODUCT USED FOR UNKNOWN INDICATION
     Dosage: UNK
     Route: 065
     Dates: start: 20201121, end: 20201130
  2. WELLBUTRIN [Concomitant]
     Active Substance: BUPROPION HYDROCHLORIDE
  3. TRAZODONE [Concomitant]
     Active Substance: TRAZODONE HYDROCHLORIDE
  4. SUMATRIPTAN. [Concomitant]
     Active Substance: SUMATRIPTAN
  5. PROZAC [Concomitant]
     Active Substance: FLUOXETINE HYDROCHLORIDE
  6. XANAX [Concomitant]
     Active Substance: ALPRAZOLAM
  7. NEURONTIN [Concomitant]
     Active Substance: GABAPENTIN

REACTIONS (7)
  - Anxiety [Unknown]
  - Depression [Unknown]
  - Pruritus [Unknown]
  - Constipation [Unknown]
  - Alopecia [Unknown]
  - Weight decreased [Unknown]
  - Rash [Unknown]

NARRATIVE: CASE EVENT DATE: 20201121
